FAERS Safety Report 8109682-4 (Version None)
Quarter: 2012Q1

REPORT INFORMATION
  Report Type: 
  Country: None (occurrence: None)
  Receive Date: 20120202
  Receipt Date: 20120119
  Transmission Date: 20120608
  Serious: Yes (Life-Threatening, Hospitalization)
  Sender: FDA-Public Use
  Company Number: BE-WATSON-2012-00147

PATIENT
  Age: 44 Year
  Sex: Female

DRUGS (2)
  1. TRELSTAR [Suspect]
     Indication: BREAST CANCER
     Dosage: 3.75 MG ONCE A MONTH
     Route: 030
     Dates: start: 20070823
  2. TAMOXIFEN CITRATE [Suspect]
     Indication: BREAST CANCER
     Dosage: UNK
     Route: 048
     Dates: start: 20070923

REACTIONS (1)
  - DEPRESSION [None]
